FAERS Safety Report 6158808-0 (Version None)
Quarter: 2009Q2

REPORT INFORMATION
  Report Type: 
  Country: None (occurrence: None)
  Receive Date: 20090414
  Receipt Date: 20090116
  Transmission Date: 20091009
  Serious: Yes (Hospitalization)
  Sender: FDA-Public Use
  Company Number: 2009-00332

PATIENT
  Age: 37 Year
  Sex: Female

DRUGS (3)
  1. FERRLECIT [Suspect]
     Indication: DRUG USE FOR UNKNOWN INDICATION
     Dosage: 125 MG, INTO DIALYSIS, INTRAVENOUS
     Route: 042
     Dates: start: 20080401, end: 20081217
  2. LEVAQUIN [Concomitant]
  3. ANTIBIOTICS [Concomitant]

REACTIONS (1)
  - URTICARIA [None]
